FAERS Safety Report 18985454 (Version 1)
Quarter: 2021Q1

REPORT INFORMATION
  Report Type: Spontaneous
  Country: US (occurrence: US)
  Receive Date: 20210309
  Receipt Date: 20210309
  Transmission Date: 20210420
  Serious: No
  Sender: FDA-Public Use
  Company Number: US-PFIZER INC-2021045510

PATIENT
  Age: 65 Year
  Sex: Female
  Weight: 65.9 kg

DRUGS (5)
  1. PREMARIN [Suspect]
     Active Substance: ESTROGENS, CONJUGATED
     Dosage: UNK, 2X/WEEK (1 APP VAGINALLY/THEN TWICE WEEKLY)
     Route: 067
  2. PREMARIN [Suspect]
     Active Substance: ESTROGENS, CONJUGATED
     Dosage: 1 GM VAGINALLY EVERY PM X 2 WEEKS THEN 1 GM VAGINALLY TWICE WEEKLY
     Route: 067
  3. PREMARIN [Suspect]
     Active Substance: ESTROGENS, CONJUGATED
     Dosage: 1 GM VAGINALLY EVERY PM X 2 WEEKS THEN 1 GM VAGINALLY TWICE WEEKLY
     Route: 067
  4. PREMARIN [Suspect]
     Active Substance: ESTROGENS, CONJUGATED
     Indication: ATROPHIC VULVOVAGINITIS
     Dosage: UNK (1 APP VAGINALLY DAILY FOR 2 WEEKS)
     Route: 067
  5. PREMARIN [Suspect]
     Active Substance: ESTROGENS, CONJUGATED
     Dosage: 1 GM VAGINALLY EVERY PM X 2 WEEKS THEN 1 GM VAGINALLY TWICE WEEKLY
     Route: 067

REACTIONS (3)
  - Off label use [Unknown]
  - Malaise [Unknown]
  - Product prescribing error [Unknown]
